FAERS Safety Report 10219431 (Version 1)
Quarter: 2014Q2

REPORT INFORMATION
  Report Type: Spontaneous
  Country: US (occurrence: None)
  Receive Date: 20140604
  Receipt Date: 20140604
  Transmission Date: 20141212
  Serious: No
  Sender: FDA-Public Use
  Company Number: None

PATIENT
  Age: 72 Year
  Sex: Male

DRUGS (2)
  1. TACROLIMUS [Suspect]
     Indication: RENAL TRANSPLANT
     Route: 048
     Dates: start: 20120216
  2. MYCOPHENOLATE [Suspect]
     Indication: RENAL TRANSPLANT
     Route: 048
     Dates: start: 20120220

REACTIONS (6)
  - Fluid retention [None]
  - Vomiting [None]
  - Pyrexia [None]
  - Chills [None]
  - Nausea [None]
  - Product substitution issue [None]
